FAERS Safety Report 4491974-1 (Version None)
Quarter: 2004Q4

REPORT INFORMATION
  Report Type: 
  Country: None (occurrence: None)
  Receive Date: 20041029
  Receipt Date: 20041029
  Transmission Date: 20050328
  Serious: Yes (Other)
  Sender: FDA-Public Use
  Company Number: None

PATIENT
  Age: 38 Year
  Sex: Male
  Weight: 83.9154 kg

DRUGS (4)
  1. GEODON [Suspect]
     Indication: BIPOLAR DISORDER
     Dosage: SEE IMAGE
     Dates: start: 20040517, end: 20040901
  2. GEODON [Suspect]
     Indication: MAJOR DEPRESSION
     Dosage: SEE IMAGE
     Dates: start: 20040517, end: 20040901
  3. ABILIFY [Suspect]
     Indication: BIPOLAR DISORDER
     Dosage: 10 MG, PO, QAM
     Route: 048
     Dates: start: 20041008, end: 20041021
  4. ABILIFY [Suspect]
     Indication: MAJOR DEPRESSION
     Dosage: 10 MG, PO, QAM
     Route: 048
     Dates: start: 20041008, end: 20041021

REACTIONS (2)
  - ANGER [None]
  - SUICIDAL IDEATION [None]
